FAERS Safety Report 5721840-2 (Version None)
Quarter: 2008Q2

REPORT INFORMATION
  Report Type: 
  Country: None (occurrence: None)
  Receive Date: 20080429
  Receipt Date: 20070507
  Transmission Date: 20081010
  Serious: No
  Sender: FDA-Public Use
  Company Number: US-ASTRAZENECA-2007UW10862

PATIENT
  Age: 68 Year
  Sex: Female
  Weight: 65.8 kg

DRUGS (3)
  1. NEXIUM [Suspect]
     Indication: GASTROOESOPHAGEAL REFLUX DISEASE
     Route: 048
     Dates: start: 20050101
  2. EVISTA [Concomitant]
  3. CALCIUM [Concomitant]

REACTIONS (2)
  - GALLBLADDER DISORDER [None]
  - OESOPHAGEAL PAIN [None]
